FAERS Safety Report 13843503 (Version 2)
Quarter: 2017Q4

REPORT INFORMATION
  Report Type: Spontaneous
  Country: US (occurrence: US)
  Receive Date: 20170808
  Receipt Date: 20171017
  Transmission Date: 20180320
  Serious: No
  Sender: FDA-Public Use
  Company Number: US-GLAXOSMITHKLINE-US2017121996

PATIENT
  Sex: Female

DRUGS (14)
  1. FUROSEMIDE. [Concomitant]
     Active Substance: FUROSEMIDE
  2. CARVEDILOL. [Concomitant]
     Active Substance: CARVEDILOL
  3. COQ10 [Concomitant]
     Active Substance: UBIDECARENONE
  4. ASPIRIN (BABY) [Concomitant]
     Active Substance: ASPIRIN
  5. PRAVASTATIN. [Concomitant]
     Active Substance: PRAVASTATIN
  6. TYLENOL [Concomitant]
     Active Substance: ACETAMINOPHEN
  7. PURE BAKING SODA [Concomitant]
     Active Substance: SODIUM BICARBONATE
  8. MELATONIN [Concomitant]
     Active Substance: MELATONIN
  9. PROBIOTIC 10 [Concomitant]
  10. AMLODIPINE [Concomitant]
     Active Substance: AMLODIPINE BESYLATE
  11. SPIRONOLACTONE. [Concomitant]
     Active Substance: SPIRONOLACTONE
  12. ZANTAC [Concomitant]
     Active Substance: RANITIDINE HYDROCHLORIDE
  13. TANZEUM [Suspect]
     Active Substance: ALBIGLUTIDE
     Indication: TYPE 2 DIABETES MELLITUS
     Dosage: 30 MG, WE
     Route: 042
  14. SCHIFF MOVE FREE [Concomitant]
     Active Substance: CHONDROITIN SULFATE A\GLUCOSAMINE

REACTIONS (5)
  - Product quality issue [Unknown]
  - Nausea [Recovering/Resolving]
  - Overdose [Unknown]
  - Wrong technique in device usage process [Unknown]
  - Vomiting [Recovering/Resolving]
